FAERS Safety Report 10597761 (Version 1)
Quarter: 2014Q4

REPORT INFORMATION
  Report Type: Spontaneous
  Country: US (occurrence: None)
  Receive Date: 20141120
  Receipt Date: 20141120
  Transmission Date: 20150529
  Serious: No
  Sender: FDA-Public Use
  Company Number: None

PATIENT
  Age: 71 Year
  Sex: Female
  Weight: 81.65 kg

DRUGS (19)
  1. LEVOTHYROXIN [Concomitant]
     Active Substance: LEVOTHYROXINE
  2. BAYER ASPIRIN [Concomitant]
     Active Substance: ASPIRIN
  3. MEG-C [Concomitant]
  4. FISH OIL [Concomitant]
     Active Substance: FISH OIL
  5. POTASSIUM [Concomitant]
     Active Substance: POTASSIUM
  6. BENICAR HCT [Concomitant]
     Active Substance: HYDROCHLOROTHIAZIDE\OLMESARTAN MEDOXOMIL
  7. TRAVETAN Z [Concomitant]
  8. D3 [Concomitant]
     Active Substance: 25-HYDROXYCHOLECALCIFEROL, 5-TRANS-
  9. NAFTIN [Suspect]
     Active Substance: NAFTIFINE HYDROCHLORIDE
     Indication: PRODUCT USED FOR UNKNOWN INDICATION
     Dosage: 2% PROFESSIONAL SAMPLE, ONCE DAILY, ON FEET
     Dates: start: 20140927, end: 20141002
  10. MEGNESIUM [Concomitant]
  11. PRAVASTATIN [Concomitant]
     Active Substance: PRAVASTATIN\PRAVASTATIN SODIUM
  12. LANTUS SOLOSTAR PEN [Concomitant]
  13. NOVOLOG [Concomitant]
     Active Substance: INSULIN ASPART
  14. META MUCIL [Concomitant]
  15. VITAMIN B12 [Concomitant]
     Active Substance: CYANOCOBALAMIN
  16. BIOTIN [Concomitant]
     Active Substance: BIOTIN
  17. CALCIUM [Concomitant]
     Active Substance: CALCIUM
  18. OMEGA 3 [Concomitant]
     Active Substance: OMEGA-3 FATTY ACIDS
  19. STOOL SOFTENER [Concomitant]
     Active Substance: DOCUSATE CALCIUM

REACTIONS (8)
  - Scab [None]
  - Local swelling [None]
  - Skin exfoliation [None]
  - Dry skin [None]
  - Onychomadesis [None]
  - Pruritus [None]
  - Skin irritation [None]
  - Blister [None]

NARRATIVE: CASE EVENT DATE: 20140926
